FAERS Safety Report 9920846 (Version 1)
Quarter: 2014Q1

REPORT INFORMATION
  Report Type: Spontaneous
  Country: US (occurrence: US)
  Receive Date: 20140225
  Receipt Date: 20140225
  Transmission Date: 20141002
  Serious: Yes (Death)
  Sender: FDA-Public Use
  Company Number: US-ROCHE-1355066

PATIENT
  Age: 54 Year
  Sex: Male
  Weight: 87 kg

DRUGS (1)
  1. KLONOPIN [Suspect]
     Indication: MUSCLE SPASMS
     Route: 048
     Dates: start: 20101110

REACTIONS (1)
  - Death [Fatal]
